FAERS Safety Report 6444594-3 (Version None)
Quarter: 2009Q4

REPORT INFORMATION
  Report Type: 
  Country: None (occurrence: None)
  Receive Date: 20091118
  Receipt Date: 20091008
  Transmission Date: 20100525
  Serious: No
  Sender: FDA-Public Use
  Company Number: A0814428A

PATIENT
  Age: 64 Year
  Sex: Female
  Weight: 90.9 kg

DRUGS (8)
  1. COREG CR [Suspect]
  2. CARVEDILOL [Suspect]
  3. LIPITOR [Suspect]
     Indication: BLOOD CHOLESTEROL INCREASED
     Dosage: 10MG PER DAY
     Route: 048
  4. DILTIAZEM [Concomitant]
  5. VALSARTAN [Concomitant]
  6. HYDROCHLOROTHIAZIDE [Concomitant]
  7. UNKNOWN [Concomitant]
     Indication: BLOOD PRESSURE
  8. PRILOSEC [Concomitant]

REACTIONS (3)
  - ARTHRALGIA [None]
  - INTERVERTEBRAL DISC PROTRUSION [None]
  - NERVOUSNESS [None]
